FAERS Safety Report 7957755-9 (Version None)
Quarter: 2011Q4

REPORT INFORMATION
  Report Type: 
  Country: None (occurrence: None)
  Receive Date: 20111205
  Receipt Date: 20111130
  Transmission Date: 20120403
  Serious: Yes (Other)
  Sender: FDA-Public Use
  Company Number: PHHY2011DE104997

PATIENT
  Age: 73 Year
  Sex: Male

DRUGS (6)
  1. PALLADONE [Concomitant]
  2. PANTOPRAZOLE SODIUM [Concomitant]
  3. ZOMETA [Suspect]
     Dates: start: 20070101
  4. IBUPROFEN [Concomitant]
  5. TAXOTERE [Concomitant]
     Dates: start: 20090601
  6. PREDNISOLONE [Concomitant]

REACTIONS (1)
  - OSTEONECROSIS OF JAW [None]
